FAERS Safety Report 6164114-0 (Version None)
Quarter: 2009Q2

REPORT INFORMATION
  Report Type: 
  Country: None (occurrence: None)
  Receive Date: 20090422
  Receipt Date: 20090415
  Transmission Date: 20091009
  Serious: Yes (Hospitalization)
  Sender: FDA-Public Use
  Company Number: B0569976A

PATIENT
  Sex: Female

DRUGS (8)
  1. VALACYCLOVIR HCL [Suspect]
     Indication: HERPES ZOSTER
     Dosage: 2TAB THREE TIMES PER DAY
     Route: 048
     Dates: start: 20090305, end: 20090309
  2. TRUVADA [Suspect]
     Indication: HIV INFECTION
     Route: 048
     Dates: start: 20090216, end: 20090309
  3. REYATAZ [Suspect]
     Indication: HIV INFECTION
     Route: 048
     Dates: start: 20090216, end: 20090303
  4. NORVIR [Concomitant]
     Indication: HIV INFECTION
     Dosage: 100MG PER DAY
     Route: 065
     Dates: start: 20090216
  5. PRETERAX [Concomitant]
     Indication: HYPERTENSION
     Route: 065
  6. FLUOROURACIL [Concomitant]
     Dosage: 900MG PER DAY
     Route: 065
     Dates: start: 20090223
  7. EPIRUBICIN [Concomitant]
     Dosage: 180MG PER DAY
     Route: 065
     Dates: start: 20090223
  8. CYCLOPHOSPHAMIDE [Concomitant]
     Dosage: 900MG PER DAY
     Route: 065
     Dates: start: 20090223

REACTIONS (9)
  - ANURIA [None]
  - CHOLESTASIS [None]
  - CRYSTAL URINE PRESENT [None]
  - DIARRHOEA HAEMORRHAGIC [None]
  - HAEMATOCHEZIA [None]
  - HEPATOCELLULAR INJURY [None]
  - PYREXIA [None]
  - RENAL FAILURE ACUTE [None]
  - RENAL TUBULAR NECROSIS [None]
